FAERS Safety Report 5612320-3 (Version None)
Quarter: 2008Q1

REPORT INFORMATION
  Report Type: 
  Country: None (occurrence: None)
  Receive Date: 20080204
  Receipt Date: 20080125
  Transmission Date: 20080703
  Serious: Yes (Life-Threatening, Other)
  Sender: FDA-Public Use
  Company Number: JP-ABBOTT-08P-087-0435030-01

PATIENT
  Sex: Male
  Weight: 68 kg

DRUGS (25)
  1. HUMIRA [Suspect]
     Indication: CROHN'S DISEASE
     Route: 058
     Dates: start: 20080108, end: 20080108
  2. CLINDAMYCIN HCL [Concomitant]
     Indication: ACNE
     Route: 062
     Dates: start: 20071020
  3. PREDNISOLONE [Concomitant]
     Indication: CROHN'S DISEASE
  4. PREDNISOLONE [Concomitant]
     Route: 042
     Dates: start: 20080109, end: 20080111
  5. ELENTAL [Concomitant]
     Indication: CROHN'S DISEASE
     Dates: end: 20080201
  6. VEEN D [Concomitant]
     Indication: DRUG USE FOR UNKNOWN INDICATION
     Route: 042
     Dates: start: 20080108, end: 20080108
  7. VEEN D [Concomitant]
     Dates: start: 20080109, end: 20080109
  8. VEEN 3G [Concomitant]
     Indication: DRUG USE FOR UNKNOWN INDICATION
     Route: 042
     Dates: start: 20080108, end: 20080108
  9. VEEN 3G [Concomitant]
     Dates: start: 20080109, end: 20080109
  10. PRIMAXIN [Concomitant]
     Indication: DRUG USE FOR UNKNOWN INDICATION
     Route: 042
     Dates: start: 20080108, end: 20080108
  11. PRIMAXIN [Concomitant]
     Route: 042
     Dates: start: 20080109, end: 20080110
  12. CLINDAMYCIN HCL [Concomitant]
     Indication: DRUG USE FOR UNKNOWN INDICATION
     Route: 042
     Dates: start: 20080108, end: 20080108
  13. IMMUNE GLOBULIN INTRAVENOUS (HUMAN) [Concomitant]
     Indication: DRUG USE FOR UNKNOWN INDICATION
     Route: 042
     Dates: start: 20080108, end: 20080108
  14. IMMUNE GLOBULIN INTRAVENOUS (HUMAN) [Concomitant]
     Dates: start: 20080109, end: 20080109
  15. SOLITA-T3 [Concomitant]
     Indication: DRUG USE FOR UNKNOWN INDICATION
     Route: 042
     Dates: start: 20080109, end: 20080109
  16. SOLITA-T3 [Concomitant]
     Route: 042
     Dates: start: 20080110, end: 20080110
  17. GABEXATE MESILATE [Concomitant]
     Indication: DRUG USE FOR UNKNOWN INDICATION
     Dates: start: 20080109, end: 20080109
  18. GABEXATE MESILATE [Concomitant]
     Dates: start: 20080110, end: 20080111
  19. FULCALIQ 2 [Concomitant]
     Indication: DRUG USE FOR UNKNOWN INDICATION
     Dates: start: 20080109, end: 20080110
  20. FULCALIQ 2 [Concomitant]
     Dates: start: 20080111, end: 20080111
  21. FAMOTIDINE [Concomitant]
     Indication: DRUG USE FOR UNKNOWN INDICATION
     Dates: start: 20080109, end: 20080110
  22. PHENOBARBITAL TAB [Concomitant]
     Indication: DRUG USE FOR UNKNOWN INDICATION
     Dates: start: 20080109, end: 20080201
  23. ISOTONIC SODIUM CHLORIDE [Concomitant]
     Indication: DRUG USE FOR UNKNOWN INDICATION
     Route: 042
     Dates: start: 20080110, end: 20080110
  24. CIMETIDINE [Concomitant]
     Indication: DRUG USE FOR UNKNOWN INDICATION
     Dates: start: 20080111, end: 20080111
  25. SOLITA-T1 [Concomitant]
     Indication: DRUG USE FOR UNKNOWN INDICATION
     Route: 042
     Dates: start: 20080108, end: 20080108

REACTIONS (2)
  - CARDIAC FAILURE [None]
  - SYSTEMIC INFLAMMATORY RESPONSE SYNDROME [None]
